FAERS Safety Report 4269538-4 (Version None)
Quarter: 2004Q1

REPORT INFORMATION
  Report Type: 
  Country: None (occurrence: None)
  Receive Date: 20040113
  Receipt Date: 20040106
  Transmission Date: 20041129
  Serious: Yes (Other)
  Sender: FDA-Public Use
  Company Number: PHFR2004GB00500

PATIENT

DRUGS (1)
  1. NEORAL [Suspect]
     Route: 065

REACTIONS (2)
  - DEAFNESS [None]
  - OTOTOXICITY [None]
